FAERS Safety Report 9352490 (Version 2)
Quarter: 2013Q4

REPORT INFORMATION
  Report Type: Spontaneous
  Country: US (occurrence: US)
  Receive Date: 20130617
  Receipt Date: 20131126
  Transmission Date: 20140711
  Serious: Yes (Hospitalization, Other)
  Sender: FDA-Public Use
  Company Number: US-B.I. PHARMACEUTICALS,INC./RIDGEFIELD-2013-BI-16751BP

PATIENT
  Age: 75 Year
  Sex: Male
  Weight: 104.33 kg

DRUGS (6)
  1. PRADAXA [Suspect]
     Indication: ATRIAL FIBRILLATION
     Dates: start: 20110228, end: 20110317
  2. BYSTOLIC [Concomitant]
     Dosage: 10 MG
     Route: 048
     Dates: start: 200811, end: 2011
  3. METOPROLOL [Concomitant]
     Dosage: 100 MG
     Route: 048
     Dates: start: 200811
  4. PREDNISONE [Concomitant]
     Route: 048
     Dates: start: 200811, end: 2011
  5. ADALAT [Concomitant]
     Dosage: 10 MG
  6. LISINOPRIL [Concomitant]
     Dosage: 10 MG
     Route: 048
     Dates: start: 200811

REACTIONS (4)
  - Haemorrhagic anaemia [Unknown]
  - Gastrointestinal haemorrhage [Unknown]
  - Coagulopathy [Unknown]
  - Haematuria [Unknown]
